FAERS Safety Report 8448137 (Version 4)
Quarter: 2013Q1

REPORT INFORMATION
  Report Type: Spontaneous
  Country: US (occurrence: None)
  Receive Date: 20120229
  Receipt Date: 20130305
  Transmission Date: 20140127
  Serious: Yes (Other)
  Sender: FDA-Public Use
  Company Number: ADR-2012-00429

PATIENT
  Age: 11 Year
  Sex: Male

DRUGS (2)
  1. LIORESAL [Suspect]
     Indication: MUSCLE SPASTICITY
     Dosage: 407.4 MCG/DAY
  2. LIORESAL [Suspect]
     Indication: CEREBRAL PALSY
     Dosage: 407.4 MCG/DAY

REACTIONS (13)
  - Decreased appetite [None]
  - Dizziness [None]
  - Paraesthesia [None]
  - Back pain [None]
  - Visual impairment [None]
  - Blood pressure decreased [None]
  - Burning sensation [None]
  - Muscle twitching [None]
  - Myoclonus [None]
  - Device malfunction [None]
  - Muscle spasms [None]
  - Asthenia [None]
  - Drug withdrawal syndrome [None]
